FAERS Safety Report 5300402-5 (Version None)
Quarter: 2007Q2

REPORT INFORMATION
  Report Type: 
  Country: None (occurrence: None)
  Receive Date: 20070413
  Receipt Date: 20070413
  Transmission Date: 20071010
  Serious: Yes (Other)
  Sender: FDA-Public Use
  Company Number: None

PATIENT
  Age: 91 Year
  Sex: Female
  Weight: 53.978 kg

DRUGS (1)
  1. SIMVASTATIN-RANBAXY JACKSONVILLE FL 32257 ALSO MFG BY OHMDAH NORTH BRU [Suspect]
     Indication: BLOOD CHOLESTEROL INCREASED
     Dosage: 20 MG DAILY
     Dates: start: 20070312, end: 20070316

REACTIONS (2)
  - GAIT DISTURBANCE [None]
  - MUSCLE INJURY [None]
